FAERS Safety Report 5584858-9 (Version None)
Quarter: 2008Q1

REPORT INFORMATION
  Report Type: 
  Country: None (occurrence: None)
  Receive Date: 20080104
  Receipt Date: 20071116
  Transmission Date: 20080703
  Serious: Yes (Other)
  Sender: FDA-Public Use
  Company Number: 020053

PATIENT
  Sex: Male

DRUGS (1)
  1. TRAZODINE HCL(TRAZODONE HYDROCHLORIDE) TABLET, 100MG [Suspect]
     Indication: SLEEP DISORDER
     Dosage: 1 TO 4 TABLET(S), HS, ORAL
     Route: 048
     Dates: start: 20071018, end: 20071019

REACTIONS (8)
  - CEREBROVASCULAR ACCIDENT [None]
  - CHOKING [None]
  - COMA [None]
  - DRY MOUTH [None]
  - EPILEPSY [None]
  - FALL [None]
  - LOSS OF CONSCIOUSNESS [None]
  - TREMOR [None]
